FAERS Safety Report 24606557 (Version 1)
Quarter: 2024Q4

REPORT INFORMATION
  Report Type: Spontaneous
  Country: US (occurrence: US)
  Receive Date: 20241112
  Receipt Date: 20241112
  Transmission Date: 20250115
  Serious: No
  Sender: Kanchan Healthcare
  Company Number: US-Kanchan Healthcare INC-2164821

PATIENT
  Age: 62 Year
  Sex: Male
  Weight: 63.636 kg

DRUGS (16)
  1. ETHAMBUTOL HYDROCHLORIDE [Suspect]
     Active Substance: ETHAMBUTOL HYDROCHLORIDE
     Indication: Mycobacterium avium complex infection
     Dates: start: 2015, end: 20240315
  2. ALBUTEROL [Concomitant]
     Active Substance: ALBUTEROL
  3. CLOFAZIMINE [Concomitant]
     Active Substance: CLOFAZIMINE
  4. SODIUM CHLORIDE [Concomitant]
     Active Substance: SODIUM CHLORIDE
  5. ROSUVASTATIN [Concomitant]
     Active Substance: ROSUVASTATIN
  6. RIFAMPIN [Concomitant]
     Active Substance: RIFAMPIN
  7. PANTOPRAZOLE SODIUM [Concomitant]
     Active Substance: PANTOPRAZOLE SODIUM
  8. MUPIROCIN [Concomitant]
     Active Substance: MUPIROCIN
  9. MONTELUKAST [Concomitant]
     Active Substance: MONTELUKAST
  10. MOMETASONE FUROATE [Concomitant]
     Active Substance: MOMETASONE FUROATE
  11. LEVOCETIRIZINE DIHYDROCHLORIDE [Concomitant]
     Active Substance: LEVOCETIRIZINE DIHYDROCHLORIDE
  12. ATROVENT [Concomitant]
     Active Substance: IPRATROPIUM BROMIDE
  13. CODEINE-GUAIFENESIN [Concomitant]
     Active Substance: CODEINE PHOSPHATE\GUAIFENESIN
  14. BENZONATATE [Concomitant]
     Active Substance: BENZONATATE
  15. AZITHROMYCIN ANHYDROUS [Concomitant]
     Active Substance: AZITHROMYCIN ANHYDROUS
  16. AZELASTINE. [Concomitant]
     Active Substance: AZELASTINE HYDROCHLORIDE

REACTIONS (4)
  - Visual impairment [Recovering/Resolving]
  - Product use in unapproved indication [Unknown]
  - Ocular toxicity [Recovering/Resolving]
  - Condition aggravated [Recovering/Resolving]

NARRATIVE: CASE EVENT DATE: 20150101
